FAERS Safety Report 9284457 (Version 2)
Quarter: 2013Q2

REPORT INFORMATION
  Report Type: Spontaneous
  Country: US (occurrence: US)
  Receive Date: 20130510
  Receipt Date: 20130510
  Transmission Date: 20140414
  Serious: Yes (Other)
  Sender: FDA-Public Use
  Company Number: US-PFIZER INC-2003143510US

PATIENT
  Age: 37 Year
  Sex: Female

DRUGS (14)
  1. MOTRIN [Suspect]
     Indication: HEADACHE
     Dosage: UP TO 4 DAILY
     Dates: end: 2001
  2. CELEBREX [Suspect]
     Indication: PAIN
     Dosage: 100 MG, BID PRN
     Route: 048
     Dates: start: 19990511, end: 199906
  3. VIOXX [Suspect]
     Indication: PAIN
     Dosage: 12.5 MG, 1 TO 2 TABS QD, PRN
     Route: 048
     Dates: start: 19990802, end: 199908
  4. VIOXX [Suspect]
     Dosage: 25 MG, 1 TO 2 TABS QD, PRN
     Route: 048
     Dates: start: 19990824, end: 2000
  5. VIOXX [Suspect]
     Dosage: 25 MG, QD, PRN
     Route: 048
     Dates: start: 20000914, end: 2001
  6. ULTRAM [Suspect]
     Indication: PAIN
     Dosage: 50 MG, 1 TO 2 TABS Q 6 HRS, PRN
     Route: 048
     Dates: start: 19990609, end: 1999
  7. ULTRAM [Suspect]
     Dosage: 50 MG, Q 6 HRS, PRN
     Route: 048
     Dates: start: 20000714
  8. KETOROLAC [Suspect]
     Indication: PAIN
     Dosage: 10 MG, Q 6 HRS, PRN
     Route: 048
     Dates: start: 20010213, end: 2001
  9. VICOPROFEN [Suspect]
     Indication: PAIN
     Dosage: 1 TAB, Q 8 HRS
     Route: 048
     Dates: start: 20010327, end: 2001
  10. HYDROCODONE W/ACETAMINOPHEN [Suspect]
     Indication: PAIN
     Dosage: 5/500, Q 4 TO 6 HRS, PRN
     Route: 048
     Dates: start: 20010416, end: 200104
  11. HYDROCODONE W/ACETAMINOPHEN [Suspect]
     Dosage: 5/500, Q 6 HRS, PRN
     Route: 048
     Dates: start: 20010420, end: 2001
  12. ACETAMINOPHEN W/CODEINE [Suspect]
     Indication: PAIN
     Dosage: 1 TO 2 TABS Q 6 HRS, PRN
     Route: 048
     Dates: start: 20010521, end: 2001
  13. ACETAMINOPHEN [Suspect]
     Indication: HEADACHE
     Dosage: UNK
     Dates: end: 2001
  14. EXCEDRIN /USA/ [Suspect]
     Indication: HEADACHE
     Dosage: UNK
     Dates: end: 2001

REACTIONS (2)
  - Nephrotic syndrome [Unknown]
  - Oedema [None]
